FAERS Safety Report 15612640 (Version 1)
Quarter: 2018Q4

REPORT INFORMATION
  Report Type: Spontaneous
  Country: US (occurrence: US)
  Receive Date: 20181107
  Receipt Date: 20181107
  Transmission Date: 20190205
  Serious: Yes (Hospitalization)
  Sender: FDA-Public Use
  Company Number: None

PATIENT
  Age: 63 Year
  Sex: Male
  Weight: 83 kg

DRUGS (2)
  1. CEFTRIAXONE. [Suspect]
     Active Substance: CEFTRIAXONE
     Indication: SURGERY
     Dates: start: 20180807, end: 20180807
  2. ROCURONIUM BROMIDE. [Suspect]
     Active Substance: ROCURONIUM BROMIDE
     Indication: SURGERY
     Dates: start: 20180807, end: 20180808

REACTIONS (4)
  - Procedural hypotension [None]
  - Anaphylactic reaction [None]
  - Anaesthetic complication [None]
  - Respiratory depression [None]

NARRATIVE: CASE EVENT DATE: 20180807
